FAERS Safety Report 16332947 (Version 4)
Quarter: 2019Q3

REPORT INFORMATION
  Report Type: Spontaneous
  Country: JP (occurrence: JP)
  Receive Date: 20190520
  Receipt Date: 20190731
  Transmission Date: 20191004
  Serious: Yes (Death, Hospitalization)
  Sender: FDA-Public Use
  Company Number: JP-ELI_LILLY_AND_COMPANY-JP201905004286

PATIENT
  Sex: Male
  Weight: 56 kg

DRUGS (4)
  1. OPDIVO [Suspect]
     Active Substance: NIVOLUMAB
     Indication: LUNG SQUAMOUS CELL CARCINOMA RECURRENT
     Dosage: 240 MG, CYCLICAL
     Route: 065
     Dates: start: 20190208, end: 20190221
  2. G LASTA [Concomitant]
     Active Substance: PEGFILGRASTIM
     Indication: PROPHYLAXIS
     Dosage: 3.6 MG
     Route: 030
     Dates: start: 20190312, end: 20190426
  3. CYRAMZA [Suspect]
     Active Substance: RAMUCIRUMAB
     Indication: LUNG SQUAMOUS CELL CARCINOMA RECURRENT
     Dosage: 646 MG, CYCLICAL
     Route: 041
     Dates: start: 20190312, end: 20190514
  4. DOCETAXEL. [Suspect]
     Active Substance: DOCETAXEL
     Indication: LUNG SQUAMOUS CELL CARCINOMA RECURRENT
     Dosage: 100 MG, CYCLICAL
     Route: 041
     Dates: start: 20190312, end: 20190514

REACTIONS (2)
  - Skin laceration [Unknown]
  - Interstitial lung disease [Fatal]

NARRATIVE: CASE EVENT DATE: 20190428
